FAERS Safety Report 19496785 (Version 1)
Quarter: 2021Q3

REPORT INFORMATION
  Report Type: Spontaneous
  Country: US (occurrence: US)
  Receive Date: 20210704
  Receipt Date: 20210704
  Transmission Date: 20211014
  Serious: Yes (Other)
  Sender: FDA-Public Use
  Company Number: None

PATIENT
  Age: 39 Year
  Sex: Male
  Weight: 78.75 kg

DRUGS (1)
  1. CANNABIS  (MINT CAKE) (CBD\THC) [Suspect]
     Active Substance: CANNABIDIOL\.DELTA.8-TETRAHYDROCANNABINOL
     Indication: SPINAL CORD INJURY
     Dosage: ?          QUANTITY:.5 OUNCE(S);?
     Route: 055

REACTIONS (4)
  - Product tampering [None]
  - Product contamination physical [None]
  - Product contamination microbial [None]
  - Pain [None]

NARRATIVE: CASE EVENT DATE: 20210523
